FAERS Safety Report 22336919 (Version 1)
Quarter: 2023Q2

REPORT INFORMATION
  Report Type: Spontaneous
  Country: US (occurrence: None)
  Receive Date: 20230517
  Receipt Date: 20230517
  Transmission Date: 20230721
  Serious: Yes (Hospitalization, Other)
  Sender: FDA-Public Use
  Company Number: None

PATIENT
  Age: 17 Year
  Sex: Female

DRUGS (1)
  1. ACCUTANE [Suspect]
     Active Substance: ISOTRETINOIN
     Indication: Acne

REACTIONS (7)
  - Migraine [None]
  - Generalised tonic-clonic seizure [None]
  - Epilepsy [None]
  - Deja vu [None]
  - Visual impairment [None]
  - Confusional state [None]
  - Hormone level abnormal [None]

NARRATIVE: CASE EVENT DATE: 19960503
